FAERS Safety Report 25047021 (Version 2)
Quarter: 2025Q2

REPORT INFORMATION
  Report Type: Spontaneous
  Country: US (occurrence: US)
  Receive Date: 20250306
  Receipt Date: 20250516
  Transmission Date: 20250717
  Serious: Yes (Other)
  Sender: PFIZER
  Company Number: US-PFIZER INC-PV202500026218

PATIENT
  Age: 67 Year
  Sex: Female

DRUGS (4)
  1. XELJANZ XR [Suspect]
     Active Substance: TOFACITINIB CITRATE
     Indication: Rheumatoid arthritis
     Dosage: 11 MG, 1X/DAY
     Route: 048
     Dates: start: 202405
  2. XELJANZ XR [Suspect]
     Active Substance: TOFACITINIB CITRATE
     Dosage: 11 MG
     Route: 048
     Dates: start: 202405, end: 20250403
  3. PLAQUENIL [Concomitant]
     Active Substance: HYDROXYCHLOROQUINE SULFATE
  4. ORENCIA [Concomitant]
     Active Substance: ABATACEPT

REACTIONS (8)
  - Angina pectoris [Unknown]
  - Therapeutic product effect decreased [Not Recovered/Not Resolved]
  - Palpitations [Unknown]
  - Abdominal discomfort [Unknown]
  - Abdominal distension [Unknown]
  - Blood urine present [Unknown]
  - Abdominal pain upper [Unknown]
  - Chest pain [Unknown]
